FAERS Safety Report 9691580 (Version 2)
Quarter: 2013Q4

REPORT INFORMATION
  Report Type: Spontaneous
  Country: JP (occurrence: JP)
  Receive Date: 20131115
  Receipt Date: 20131122
  Transmission Date: 20140711
  Serious: Yes (Death, Other)
  Sender: FDA-Public Use
  Company Number: JP-TAKEDA-2013TJP002820

PATIENT
  Age: 83 Year
  Sex: Female

DRUGS (2)
  1. TAKEPRON OD TABLETS 15 [Suspect]
     Indication: PROPHYLAXIS AGAINST GASTROINTESTINAL ULCER
     Dosage: 15 MG, QD
     Route: 048
     Dates: start: 20120921
  2. BAYASPIRIN [Concomitant]
     Dosage: UNK
     Route: 048

REACTIONS (1)
  - Gastric cancer [Fatal]
